FAERS Safety Report 7580085-4 (Version None)
Quarter: 2011Q2

REPORT INFORMATION
  Report Type: 
  Country: None (occurrence: None)
  Receive Date: 20110629
  Receipt Date: 20110621
  Transmission Date: 20111010
  Serious: Yes (Hospitalization)
  Sender: FDA-Public Use
  Company Number: JP-AMGEN-JPNCT2011032993

PATIENT
  Age: 75 Year
  Sex: Male

DRUGS (10)
  1. LEUCOVORIN CALCIUM [Concomitant]
     Indication: COLORECTAL CANCER
     Dosage: UNK
     Route: 041
     Dates: start: 20110531
  2. HUMALOG [Concomitant]
     Dosage: UNK
     Route: 042
  3. FLUOROURACIL [Concomitant]
     Dosage: UNK
     Route: 041
     Dates: start: 20110531
  4. METHYCOBAL [Concomitant]
     Dosage: UNK
     Route: 065
  5. PANITUMUMAB [Suspect]
     Indication: COLORECTAL CANCER
     Dosage: 6 MG/KG, Q2WK
     Route: 041
     Dates: start: 20110531
  6. FLUOROURACIL [Concomitant]
     Indication: COLORECTAL CANCER
     Dosage: UNK
     Route: 040
     Dates: start: 20110531
  7. OXALIPLATIN [Concomitant]
     Indication: COLORECTAL CANCER
     Route: 041
     Dates: start: 20110531
  8. TSUMURA DAIKENTYUTO [Concomitant]
     Dosage: UNK
     Route: 048
  9. FAMOTIDINE [Concomitant]
     Dosage: UNK
     Route: 048
  10. MINOCYCLINE HCL [Concomitant]
     Dosage: UNK
     Route: 065

REACTIONS (1)
  - CEREBRAL INFARCTION [None]
